FAERS Safety Report 14540465 (Version 1)
Quarter: 2018Q1

REPORT INFORMATION
  Report Type: Spontaneous
  Country: FR (occurrence: FR)
  Receive Date: 20180216
  Receipt Date: 20180216
  Transmission Date: 20180509
  Serious: Yes (Other)
  Sender: FDA-Public Use
  Company Number: FR-GLAXOSMITHKLINE-FR2018017304

PATIENT
  Age: 88 Year
  Sex: Female
  Weight: 80.4 kg

DRUGS (3)
  1. ZELITREX [Suspect]
     Active Substance: VALACYCLOVIR HYDROCHLORIDE
     Indication: OPHTHALMIC HERPES ZOSTER
     Dosage: 6 DF, QD
     Route: 048
     Dates: start: 20180112, end: 20180116
  2. IZALGI [Suspect]
     Active Substance: ACETAMINOPHEN\OPIUM
     Indication: OPHTHALMIC HERPES ZOSTER
     Dosage: UNK
     Route: 048
  3. NEURONTIN [Suspect]
     Active Substance: GABAPENTIN
     Indication: OPHTHALMIC HERPES ZOSTER
     Dosage: 1 DF, QD
     Route: 048
     Dates: start: 20180112, end: 20180116

REACTIONS (2)
  - Hyponatraemia [Recovered/Resolved]
  - Hallucination [Recovered/Resolved]

NARRATIVE: CASE EVENT DATE: 20180116
